FAERS Safety Report 12293384 (Version 1)
Quarter: 2016Q2

REPORT INFORMATION
  Report Type: Spontaneous
  Country: ES (occurrence: ES)
  Receive Date: 20160421
  Receipt Date: 20160421
  Transmission Date: 20160815
  Serious: Yes (Disabling)
  Sender: FDA-Public Use
  Company Number: ES-BAUSCH-BL-2016-008956

PATIENT
  Age: 69 Year
  Sex: Female

DRUGS (1)
  1. YELLOX 0.9 MG/ML EYE DROPS, SOLUTION [Suspect]
     Active Substance: BROMFENAC SODIUM
     Indication: CATARACT
     Route: 047
     Dates: start: 20160304

REACTIONS (4)
  - Eye irritation [Recovered/Resolved]
  - Medication error [Recovering/Resolving]
  - Vision blurred [Recovering/Resolving]
  - Abnormal sensation in eye [Recovered/Resolved]

NARRATIVE: CASE EVENT DATE: 201603
